FAERS Safety Report 21591872 (Version 2)
Quarter: 2022Q4

REPORT INFORMATION
  Report Type: Spontaneous
  Country: US (occurrence: US)
  Receive Date: 20221114
  Receipt Date: 20221122
  Transmission Date: 20230113
  Serious: Yes (Other)
  Sender: FDA-Public Use
  Company Number: US-BAXTER-2022BAX023280

PATIENT
  Sex: Male

DRUGS (3)
  1. THROMBIN TOPICAL RECOMBINANT [Suspect]
     Active Substance: THROMBIN ALFA
     Indication: Wound
     Dosage: 5000 IU VIAL, ONCE DAILY
     Route: 042
     Dates: start: 20220925, end: 20220925
  2. THROMBIN TOPICAL RECOMBINANT [Suspect]
     Active Substance: THROMBIN ALFA
     Indication: Wound
     Dosage: 5000 IU VIAL, ONCE DAILY
     Route: 042
     Dates: start: 20220925, end: 20220925
  3. THROMBIN TOPICAL RECOMBINANT [Suspect]
     Active Substance: THROMBIN ALFA
     Indication: Wound
     Dosage: 5000 IU VIAL, ONCE DAILY
     Route: 042
     Dates: start: 20220925, end: 20220925

REACTIONS (2)
  - Acute myocardial infarction [Recovered/Resolved]
  - Incorrect route of product administration [Unknown]

NARRATIVE: CASE EVENT DATE: 20220925
